FAERS Safety Report 20686044 (Version 1)
Quarter: 2022Q2

REPORT INFORMATION
  Report Type: Spontaneous
  Country: US (occurrence: US)
  Receive Date: 20220407
  Receipt Date: 20220407
  Transmission Date: 20220720
  Serious: No
  Sender: FDA-Public Use
  Company Number: US-JAZZ-2021-US-018232

PATIENT
  Age: 49 Year
  Sex: Female

DRUGS (2)
  1. SUNOSI [Suspect]
     Active Substance: SOLRIAMFETOL
     Indication: Narcolepsy
     Dosage: 150 MILLIGRAM, QD
     Route: 048
     Dates: start: 20210121
  2. SUNOSI [Suspect]
     Active Substance: SOLRIAMFETOL
     Indication: Cataplexy
     Dosage: 150 MILLIGRAM, QD
     Route: 048
     Dates: start: 20210921

REACTIONS (1)
  - Drug ineffective [Not Recovered/Not Resolved]

NARRATIVE: CASE EVENT DATE: 20210801
